FAERS Safety Report 6709333-7 (Version None)
Quarter: 2010Q2

REPORT INFORMATION
  Report Type: 
  Country: None (occurrence: None)
  Receive Date: 20100429
  Receipt Date: 20100414
  Transmission Date: 20101027
  Serious: Yes (Other)
  Sender: FDA-Public Use
  Company Number: AUR-APL-2010-01082

PATIENT
  Age: 64 Year
  Sex: Male

DRUGS (1)
  1. SIMVASTATIN [Suspect]

REACTIONS (5)
  - DERMATITIS BULLOUS [None]
  - DRUG ERUPTION [None]
  - EOSINOPHILIA [None]
  - PYREXIA [None]
  - RASH MACULO-PAPULAR [None]
